FAERS Safety Report 18240202 (Version 1)
Quarter: 2020Q3

REPORT INFORMATION
  Report Type: Spontaneous
  Country: NL (occurrence: NL)
  Receive Date: 20200908
  Receipt Date: 20200908
  Transmission Date: 20201103
  Serious: Yes (Other)
  Sender: FDA-Public Use
  Company Number: NL-ACCORD-199715

PATIENT
  Sex: Female
  Weight: 101 kg

DRUGS (2)
  1. QUETIAPINE. [Suspect]
     Active Substance: QUETIAPINE
     Indication: DEPRESSION
     Dosage: 1X PER DAY 1 PILL, STRENGTH: 50 MG
     Dates: start: 2020, end: 20200822
  2. QUETIAPINE. [Suspect]
     Active Substance: QUETIAPINE
     Indication: DEPRESSION
     Dosage: STRENGTH: 50 MG

REACTIONS (1)
  - Hallucination [Not Recovered/Not Resolved]
